FAERS Safety Report 5082858-9 (Version None)
Quarter: 2006Q3

REPORT INFORMATION
  Report Type: 
  Country: None (occurrence: None)
  Receive Date: 20060817
  Receipt Date: 20060515
  Transmission Date: 20061208
  Serious: Yes (Hospitalization, Other)
  Sender: FDA-Public Use
  Company Number: FR-ABBOTT-06P-056-0333404-00

PATIENT
  Sex: Female
  Weight: 74 kg

DRUGS (15)
  1. HUMIRA [Suspect]
     Indication: POLYARTHRITIS
     Route: 058
     Dates: start: 20040928, end: 20051001
  2. HUMIRA [Suspect]
     Indication: RHEUMATOID ARTHRITIS
     Route: 058
     Dates: start: 20051102, end: 20060316
  3. HUMIRA [Suspect]
     Route: 058
     Dates: start: 20060422, end: 20060422
  4. METHOTREXATE [Concomitant]
     Indication: POLYARTHRITIS
     Route: 048
  5. METHOTREXATE [Concomitant]
     Route: 048
     Dates: start: 20030415, end: 20060426
  6. PREDNISONE [Concomitant]
     Indication: DRUG USE FOR UNKNOWN INDICATION
  7. PREDNISONE [Concomitant]
  8. CALCIUM GLUCONATE [Concomitant]
     Indication: DRUG USE FOR UNKNOWN INDICATION
  9. ACETYSALICYLIC ACID DL-LYSINE [Concomitant]
     Indication: DRUG USE FOR UNKNOWN INDICATION
  10. FUROSEMIDE [Concomitant]
     Indication: DRUG USE FOR UNKNOWN INDICATION
  11. CELIPROLOL [Concomitant]
     Indication: DRUG USE FOR UNKNOWN INDICATION
  12. ZOLPIDEM [Concomitant]
     Indication: DRUG USE FOR UNKNOWN INDICATION
  13. POTASSIUM CHLORIDE [Concomitant]
     Indication: DRUG USE FOR UNKNOWN INDICATION
  14. FOLIC ACID [Concomitant]
     Indication: DRUG USE FOR UNKNOWN INDICATION
  15. RISEDRONATE [Concomitant]
     Indication: DRUG USE FOR UNKNOWN INDICATION

REACTIONS (3)
  - FOOT OPERATION [None]
  - LEUKOPENIA [None]
  - NEUTROPENIA [None]
